FAERS Safety Report 8592866-9 (Version None)
Quarter: 2012Q3

REPORT INFORMATION
  Report Type: 
  Country: None (occurrence: None)
  Receive Date: 20120814
  Receipt Date: 20120730
  Transmission Date: 20120928
  Serious: No
  Sender: FDA-Public Use
  Company Number: US-BAYER-2012-077202

PATIENT
  Age: 55 Year
  Sex: Female
  Weight: 81.633 kg

DRUGS (3)
  1. ALEVE (CAPLET) [Suspect]
     Dosage: 4 DF, ONCE
     Route: 048
     Dates: start: 20120730, end: 20120730
  2. CRESTOR [Concomitant]
  3. ASPIRIN [Concomitant]
     Dosage: 4 DF, UNK
     Route: 048

REACTIONS (3)
  - DIZZINESS [None]
  - PARAESTHESIA ORAL [None]
  - DRY MOUTH [None]
